FAERS Safety Report 9414080 (Version 1)
Quarter: 2013Q3

REPORT INFORMATION
  Report Type: Spontaneous
  Country: US (occurrence: US)
  Receive Date: 20130723
  Receipt Date: 20130723
  Transmission Date: 20140515
  Serious: Yes (Other)
  Sender: FDA-Public Use
  Company Number: US-PFIZER INC-2013213008

PATIENT
  Age: 57 Year
  Sex: Male
  Weight: 81.63 kg

DRUGS (2)
  1. DILANTIN [Suspect]
     Indication: CONVULSION
     Dosage: 400 MG/DAY
     Route: 048
     Dates: start: 2012
  2. LISINOPRIL W/HYDROCHLOROTHIAZIDE [Concomitant]
     Indication: HYPERTENSION
     Dosage: LISINOPRIL 10 MG / HYDROCHLOROTHIAZIDE 12.5 MG, DAILY

REACTIONS (4)
  - Drug ineffective [Unknown]
  - Balance disorder [Unknown]
  - Impaired work ability [Unknown]
  - Impaired driving ability [Unknown]
